FAERS Safety Report 4338798-3 (Version None)
Quarter: 2004Q2

REPORT INFORMATION
  Report Type: 
  Country: None (occurrence: None)
  Receive Date: 20040409
  Receipt Date: 20040322
  Transmission Date: 20050107
  Serious: Yes (Other)
  Sender: FDA-Public Use
  Company Number: USA040362738

PATIENT
  Age: 70 Year
  Sex: Female
  Weight: 55 kg

DRUGS (4)
  1. RALOXIFENE HCL [Suspect]
     Dosage: 60 MG/1 DAY
     Dates: start: 20020901
  2. FORTEO [Suspect]
     Indication: OSTEOPOROSIS
     Dosage: 20 UG/1 DAY
     Dates: start: 20031219
  3. CALCIUM [Concomitant]
  4. LOTEMAX (LOTEPREDNOL ETABONATE) [Concomitant]

REACTIONS (11)
  - BLOOD CHOLESTEROL INCREASED [None]
  - EYE DISCHARGE [None]
  - EYE IRRITATION [None]
  - EYE REDNESS [None]
  - FALL [None]
  - INJECTION SITE ERYTHEMA [None]
  - INJECTION SITE PAIN [None]
  - LUMBAR VERTEBRAL FRACTURE [None]
  - MUSCLE CRAMP [None]
  - MUSCLE SPASMS [None]
  - PHARMACEUTICAL PRODUCT COMPLAINT [None]
